FAERS Safety Report 9827694 (Version 1)
Quarter: 2013Q4

REPORT INFORMATION
  Report Type: Spontaneous
  Country: US (occurrence: None)
  Receive Date: 20131120
  Receipt Date: 20131120
  Transmission Date: 20140711
  Serious: No
  Sender: FDA-Public Use
  Company Number: 1000047354

PATIENT
  Age: 49 Year
  Sex: Female

DRUGS (4)
  1. VIIBYRD [Suspect]
     Indication: DEPRESSION
     Dosage: 10 MG (10 MG, 1 IN 1D), ORAL
     Route: 048
     Dates: start: 201304, end: 201307
  2. BUSPAR [Suspect]
     Indication: ANXIETY
     Dosage: 15 MG (7.5 MG, 2 IN 1 D), ORAL
     Route: 048
     Dates: start: 2013
  3. ADVAIR [Concomitant]
  4. FLONASE [Concomitant]

REACTIONS (10)
  - Diarrhoea [None]
  - Food craving [None]
  - Madarosis [None]
  - Pain [None]
  - Fatigue [None]
  - Abnormal dreams [None]
  - Coordination abnormal [None]
  - Headache [None]
  - Panic attack [None]
  - Off label use [None]
